FAERS Safety Report 7659524-6 (Version None)
Quarter: 2011Q3

REPORT INFORMATION
  Report Type: 
  Country: None (occurrence: None)
  Receive Date: 20110805
  Receipt Date: 20110728
  Transmission Date: 20111222
  Serious: Yes (Hospitalization)
  Sender: FDA-Public Use
  Company Number: FR-ACTELION-A-CH2011-52144

PATIENT
  Sex: Male

DRUGS (7)
  1. NEXIUM [Suspect]
  2. AMIODARONE HCL [Suspect]
  3. DOMPERIDONE [Concomitant]
  4. HAVLANE [Concomitant]
  5. SPASFON [Concomitant]
  6. TRACLEER [Suspect]
     Indication: PULMONARY ARTERIAL HYPERTENSION
     Dosage: 125 MG, BID
     Route: 048
     Dates: end: 20110505
  7. IMOVANE [Concomitant]

REACTIONS (11)
  - JAUNDICE CHOLESTATIC [None]
  - CHOLECYSTITIS [None]
  - VOMITING [None]
  - ABDOMINAL PAIN [None]
  - ASPARTATE AMINOTRANSFERASE INCREASED [None]
  - BLOOD BILIRUBIN INCREASED [None]
  - JAUNDICE HEPATOCELLULAR [None]
  - PYREXIA [None]
  - ALANINE AMINOTRANSFERASE INCREASED [None]
  - GAMMA-GLUTAMYLTRANSFERASE INCREASED [None]
  - BLOOD ALKALINE PHOSPHATASE INCREASED [None]
